FAERS Safety Report 9689438 (Version 1)
Quarter: 2013Q4

REPORT INFORMATION
  Report Type: Spontaneous
  Country: FR (occurrence: FR)
  Receive Date: 20131114
  Receipt Date: 20131114
  Transmission Date: 20140711
  Serious: Yes (Other)
  Sender: FDA-Public Use
  Company Number: FR-RB-060491-13

PATIENT
  Sex: Male

DRUGS (1)
  1. SUBUTEX [Suspect]
     Indication: PRODUCT USED FOR UNKNOWN INDICATION
     Dosage: THE PATIENT TOOK 3 DOSAGE FORMS
     Route: 045
     Dates: start: 201201, end: 201201

REACTIONS (2)
  - Aggression [Unknown]
  - Intentional drug misuse [Recovered/Resolved]
